FAERS Safety Report 22307598 (Version 1)
Quarter: 2023Q2

REPORT INFORMATION
  Report Type: Spontaneous
  Country: US (occurrence: None)
  Receive Date: 20230511
  Receipt Date: 20230511
  Transmission Date: 20230721
  Serious: No
  Sender: FDA-Public Use
  Company Number: US-ROCHE-3131592

PATIENT
  Sex: Female
  Weight: 66.284 kg

DRUGS (4)
  1. OCREVUS [Suspect]
     Active Substance: OCRELIZUMAB
     Indication: Relapsing-remitting multiple sclerosis
     Dosage: LOADING DOSE X 2
     Route: 042
     Dates: start: 2018, end: 2018
  2. OCREVUS [Suspect]
     Active Substance: OCRELIZUMAB
     Route: 042
     Dates: start: 2018
  3. BENADRYL [Concomitant]
     Active Substance: DIPHENHYDRAMINE HYDROCHLORIDE
  4. TYLENOL [Concomitant]
     Active Substance: ACETAMINOPHEN

REACTIONS (13)
  - Neuropathy peripheral [Unknown]
  - Loss of control of legs [Recovered/Resolved]
  - Speech disorder [Recovered/Resolved]
  - Gait inability [Recovered/Resolved]
  - Unevaluable event [Unknown]
  - Emotional disorder [Unknown]
  - Depression [Unknown]
  - Ill-defined disorder [Unknown]
  - Pain [Unknown]
  - Mobility decreased [Unknown]
  - Headache [Unknown]
  - Fatigue [Unknown]
  - Pain [Unknown]

NARRATIVE: CASE EVENT DATE: 20200101
